FAERS Safety Report 5157439-9 (Version None)
Quarter: 2006Q4

REPORT INFORMATION
  Report Type: 
  Country: None (occurrence: None)
  Receive Date: 20061127
  Receipt Date: 20061113
  Transmission Date: 20070319
  Serious: Yes (Other)
  Sender: FDA-Public Use
  Company Number: US-ELI_LILLY_AND_COMPANY-US200611002469

PATIENT
  Sex: Female

DRUGS (2)
  1. CYMBALTA [Suspect]
     Dosage: 90 MG, UNK
  2. WELLBUTRIN [Concomitant]

REACTIONS (13)
  - ANHEDONIA [None]
  - ARTHRITIS [None]
  - ASTHENIA [None]
  - DEPRESSED MOOD [None]
  - DIABETES MELLITUS [None]
  - FATIGUE [None]
  - FIBROMYALGIA [None]
  - INSOMNIA [None]
  - IRRITABILITY [None]
  - PAIN [None]
  - SYSTEMIC LUPUS ERYTHEMATOSUS [None]
  - THYROID DISORDER [None]
  - WEIGHT LOSS POOR [None]
